FAERS Safety Report 26059092 (Version 1)
Quarter: 2025Q4

REPORT INFORMATION
  Report Type: Spontaneous
  Country: US (occurrence: US)
  Receive Date: 20251118
  Receipt Date: 20251118
  Transmission Date: 20260117
  Serious: No
  Sender: COLLEGIUM PHARMACEUTICAL
  Company Number: US-COLLEGIUM PHARMACEUTICAL, INC.-20241101487

PATIENT
  Age: 64 Year
  Sex: Male

DRUGS (1)
  1. BELBUCA [Suspect]
     Active Substance: BUPRENORPHINE HYDROCHLORIDE
     Indication: Product used for unknown indication
     Dosage: 600 MCG, UNKNOWN
     Route: 002

REACTIONS (3)
  - Gingival recession [Unknown]
  - Loose tooth [Unknown]
  - Gingival pain [Unknown]
